FAERS Safety Report 11948483 (Version 1)
Quarter: 2016Q1

REPORT INFORMATION
  Report Type: Spontaneous
  Country: US (occurrence: US)
  Receive Date: 20160125
  Receipt Date: 20160125
  Transmission Date: 20160526
  Serious: Yes (Other)
  Sender: FDA-Public Use
  Company Number: US-BAYER-2016-009800

PATIENT
  Age: 51 Year
  Sex: Female

DRUGS (2)
  1. CLARITIN-D 12 HOUR [Suspect]
     Active Substance: LORATADINE\PSEUDOEPHEDRINE SULFATE
     Indication: NASAL CONGESTION
     Dosage: 1 DF, PRN
     Route: 048
     Dates: start: 1980
  2. AFRIN ORIGINAL [Suspect]
     Active Substance: OXYMETAZOLINE HYDROCHLORIDE
     Indication: NASAL CONGESTION
     Dosage: UNK
     Route: 055
     Dates: start: 1986

REACTIONS (6)
  - Nervous system disorder [None]
  - Insomnia [Recovered/Resolved]
  - Wrong technique in product usage process [None]
  - Product packaging issue [None]
  - Product use issue [None]
  - Agitation [Recovered/Resolved]
